FAERS Safety Report 21458675 (Version 2)
Quarter: 2022Q4

REPORT INFORMATION
  Report Type: Spontaneous
  Country: FR (occurrence: FR)
  Receive Date: 20221014
  Receipt Date: 20221111
  Transmission Date: 20230112
  Serious: No
  Sender: FDA-Public Use
  Company Number: FR-ORGANON-O2210FRA000722

PATIENT
  Sex: Female

DRUGS (1)
  1. NEXPLANON [Suspect]
     Active Substance: ETONOGESTREL
     Dosage: 1 IMPLANT RIGHT ARM (NON DOMINANT)
     Route: 059
     Dates: start: 20220930, end: 2022

REACTIONS (9)
  - Scratch [Unknown]
  - Swelling [Recovered/Resolved]
  - Breast swelling [Recovered/Resolved]
  - Swelling face [Recovered/Resolved]
  - Implant site swelling [Recovered/Resolved]
  - Implant site pain [Recovered/Resolved]
  - Pain [Recovered/Resolved]
  - Maternal exposure during breast feeding [Unknown]
  - Inappropriate schedule of product administration [Unknown]

NARRATIVE: CASE EVENT DATE: 20220101
